FAERS Safety Report 6152076-1 (Version None)
Quarter: 2009Q2

REPORT INFORMATION
  Report Type: 
  Country: None (occurrence: None)
  Receive Date: 20090408
  Receipt Date: 20090331
  Transmission Date: 20091009
  Serious: Yes (Other)
  Sender: FDA-Public Use
  Company Number: 190235USA

PATIENT
  Age: 93 Year
  Sex: Male

DRUGS (3)
  1. BISOPROLOL FUMARATE [Suspect]
     Indication: CARDIAC FAILURE
     Dosage: 1.25 MG (1 IN 1 D),ORAL;  2.5 MG (1 IN 1 D),ORAL;  3.75 MG (1 IN 1 D), ORAL
     Route: 048
     Dates: start: 20061001, end: 20080201
  2. BISOPROLOL FUMARATE [Suspect]
     Indication: CARDIAC FAILURE
     Dosage: 1.25 MG (1 IN 1 D),ORAL;  2.5 MG (1 IN 1 D),ORAL;  3.75 MG (1 IN 1 D), ORAL
     Route: 048
     Dates: start: 20080201, end: 20081216
  3. BISOPROLOL FUMARATE [Suspect]
     Indication: CARDIAC FAILURE
     Dosage: 1.25 MG (1 IN 1 D),ORAL;  2.5 MG (1 IN 1 D),ORAL;  3.75 MG (1 IN 1 D), ORAL
     Route: 048
     Dates: start: 20081216, end: 20090101

REACTIONS (6)
  - CONDITION AGGRAVATED [None]
  - DELIRIUM [None]
  - DISCOMFORT [None]
  - HEARING IMPAIRED [None]
  - HYPOACUSIS [None]
  - NIGHTMARE [None]
